FAERS Safety Report 23119005 (Version 2)
Quarter: 2025Q2

REPORT INFORMATION
  Report Type: Spontaneous
  Country: BR (occurrence: BR)
  Receive Date: 20231028
  Receipt Date: 20250507
  Transmission Date: 20250716
  Serious: No
  Sender: UCB
  Company Number: BR-UCBSA-2023050451

PATIENT

DRUGS (2)
  1. NEUPRO [Suspect]
     Active Substance: ROTIGOTINE
     Indication: Product used for unknown indication
  2. NEUPRO [Suspect]
     Active Substance: ROTIGOTINE

REACTIONS (2)
  - Product quality issue [Unknown]
  - Product packaging issue [Unknown]
